FAERS Safety Report 5688855-4 (Version None)
Quarter: 2008Q1

REPORT INFORMATION
  Report Type: 
  Country: None (occurrence: None)
  Receive Date: 20080331
  Receipt Date: 20050304
  Transmission Date: 20080703
  Serious: Yes (Death, Other)
  Sender: FDA-Public Use
  Company Number: JP-ROCHE-397801

PATIENT
  Age: 26 Year
  Sex: Male

DRUGS (1)
  1. TAMIFLU [Suspect]
     Indication: INFLUENZA
     Route: 048
     Dates: start: 20050302, end: 20050302

REACTIONS (4)
  - CEREBRAL DISORDER [None]
  - DEATH [None]
  - INTERSTITIAL LUNG DISEASE [None]
  - SPINAL CORD OEDEMA [None]
